FAERS Safety Report 5228951-9 (Version None)
Quarter: 2007Q1

REPORT INFORMATION
  Report Type: 
  Country: None (occurrence: None)
  Receive Date: 20061201
  Receipt Date: 20061004
  Transmission Date: 20070707
  Serious: No
  Sender: FDA-Public Use
  Company Number: US200610001109

PATIENT
  Age: 74 Year
  Sex: Male

DRUGS (7)
  1. ZYPREXA [Suspect]
     Indication: PARANOIA
     Dosage: SEE IMAGE
  2. CYMBALTA [Suspect]
     Dosage: 30 MG
  3. DITROPAN XL [Concomitant]
  4. PRINIVIL [Concomitant]
  5. LOPRESSOR [Concomitant]
  6. ASPIRIN [Concomitant]
  7. ZOCOR [Concomitant]

REACTIONS (5)
  - EYE DISCHARGE [None]
  - EYE DISORDER [None]
  - EYE SWELLING [None]
  - FEELING ABNORMAL [None]
  - NASAL OEDEMA [None]
